FAERS Safety Report 16372160 (Version 3)
Quarter: 2019Q3

REPORT INFORMATION
  Report Type: Spontaneous
  Country: JP (occurrence: JP)
  Receive Date: 20190530
  Receipt Date: 20190705
  Transmission Date: 20191004
  Serious: Yes (Other)
  Sender: FDA-Public Use
  Company Number: PHJP2019JP005759

PATIENT
  Age: 81 Year
  Sex: Female

DRUGS (4)
  1. EXELON PATCH [Suspect]
     Active Substance: RIVASTIGMINE
     Dosage: 6.9 MG, QD (PATCH 7.5 CM2, 13.5 MG RIVASTIGMINE BASE)
     Route: 062
  2. EXELON PATCH [Suspect]
     Active Substance: RIVASTIGMINE
     Dosage: 9.5 MG, QD (PATCH 10 CM2)
     Route: 062
     Dates: end: 20190528
  3. EXELON PATCH [Suspect]
     Active Substance: RIVASTIGMINE
     Indication: DEMENTIA ALZHEIMER^S TYPE
     Dosage: 1.9 MG, QD (PATCH 2.5 CM2)
     Route: 062
     Dates: start: 201807
  4. EXELON PATCH [Suspect]
     Active Substance: RIVASTIGMINE
     Dosage: 4.6 MG, QD (PATCH 5 CM2, 9 MG RIVASTIGMINE BASE)
     Route: 062

REACTIONS (8)
  - Electrocardiogram T wave inversion [Recovered/Resolved]
  - Vomiting [Unknown]
  - Electrocardiogram QT prolonged [Unknown]
  - Brain natriuretic peptide increased [Not Recovered/Not Resolved]
  - Nausea [Unknown]
  - Pyrexia [Unknown]
  - Stress cardiomyopathy [Recovering/Resolving]
  - Troponin T increased [Unknown]

NARRATIVE: CASE EVENT DATE: 201905
